FAERS Safety Report 4284860-3 (Version None)
Quarter: 2004Q1

REPORT INFORMATION
  Report Type: 
  Country: None (occurrence: None)
  Receive Date: 20040204
  Receipt Date: 20040127
  Transmission Date: 20041129
  Serious: Yes (Death, Hospitalization, Other)
  Sender: FDA-Public Use
  Company Number: NO-BRISTOL-MYERS SQUIBB COMPANY-12489704

PATIENT
  Age: 82 Year
  Sex: Male

DRUGS (2)
  1. VEPESID [Suspect]
     Indication: LUNG NEOPLASM MALIGNANT
     Route: 042
     Dates: start: 20020208, end: 20020212
  2. CARBOPLATIN [Suspect]
     Indication: LUNG NEOPLASM MALIGNANT
     Route: 042
     Dates: start: 20020208, end: 20020208

REACTIONS (5)
  - BONE MARROW DEPRESSION [None]
  - FUNGAL INFECTION [None]
  - LUNG NEOPLASM MALIGNANT [None]
  - NEUTROPENIC SEPSIS [None]
  - PANCYTOPENIA [None]
